FAERS Safety Report 19299728 (Version 1)
Quarter: 2021Q2

REPORT INFORMATION
  Report Type: Spontaneous
  Country: US (occurrence: US)
  Receive Date: 20210524
  Receipt Date: 20210524
  Transmission Date: 20210717
  Serious: No
  Sender: FDA-Public Use
  Company Number: None

PATIENT
  Age: 72 Year
  Sex: Female
  Weight: 88.9 kg

DRUGS (2)
  1. DEFINITY [Concomitant]
     Active Substance: PERFLUTREN
     Dates: start: 20210520, end: 20210520
  2. DEFINITY [Suspect]
     Active Substance: PERFLUTREN
     Indication: STRESS ECHOCARDIOGRAM
     Dosage: OTHER FREQUENCY:ONCE;?
     Route: 040
     Dates: start: 20210520, end: 20210520

REACTIONS (2)
  - Electric shock sensation [None]
  - Back pain [None]

NARRATIVE: CASE EVENT DATE: 20210520
